FAERS Safety Report 18051897 (Version 2)
Quarter: 2020Q3

REPORT INFORMATION
  Report Type: Report from Study
  Country: US (occurrence: US)
  Receive Date: 20200722
  Receipt Date: 20200728
  Transmission Date: 20201103
  Serious: Yes (Other)
  Sender: FDA-Public Use
  Company Number: US-AMGEN-USASL2020087224

PATIENT
  Age: 77 Year
  Sex: Female

DRUGS (2)
  1. REPATHA [Suspect]
     Active Substance: EVOLOCUMAB
     Dosage: 420 MILLIGRAM, QMO
     Route: 065
  2. REPATHA [Suspect]
     Active Substance: EVOLOCUMAB
     Indication: HYPERCHOLESTEROLAEMIA
     Dosage: 420 MILLIGRAM, QMO
     Route: 065

REACTIONS (7)
  - Wrong technique in product usage process [Unknown]
  - Concussion [Unknown]
  - Road traffic accident [Unknown]
  - Spinal disorder [Unknown]
  - Facial bones fracture [Unknown]
  - Arthropathy [Unknown]
  - Device defective [Unknown]

NARRATIVE: CASE EVENT DATE: 2019
